FAERS Safety Report 5748158-6 (Version None)
Quarter: 2008Q2

REPORT INFORMATION
  Report Type: 
  Country: None (occurrence: None)
  Receive Date: 20080523
  Receipt Date: 20080519
  Transmission Date: 20081010
  Serious: Yes (Hospitalization)
  Sender: FDA-Public Use
  Company Number: US-BOEHRINGER INGELHEIM GMBH, GERMANY-2008-BP-07753BP

PATIENT
  Age: 89 Year
  Sex: Female

DRUGS (10)
  1. AGGRENOX [Suspect]
     Indication: CEREBROVASCULAR ACCIDENT PROPHYLAXIS
     Route: 048
     Dates: start: 20071201
  2. AGGRENOX [Suspect]
     Indication: CAROTID ARTERY DISEASE
  3. CARDIZEM [Concomitant]
  4. FLOVENT [Concomitant]
  5. FOSAMAX [Concomitant]
  6. LIPITOR [Concomitant]
  7. LISINOPRIL [Concomitant]
  8. HYDROCHLOROTHIAZIDE [Concomitant]
  9. CALCIUM [Concomitant]
  10. VIT D [Concomitant]

REACTIONS (3)
  - ANAEMIA [None]
  - BACK PAIN [None]
  - DYSPNOEA [None]
